FAERS Safety Report 4765958-X (Version None)
Quarter: 2005Q3

REPORT INFORMATION
  Report Type: 
  Country: None (occurrence: None)
  Receive Date: 20050907
  Receipt Date: 20050907
  Transmission Date: 20060218
  Serious: Yes (Other)
  Sender: FDA-Public Use
  Company Number: None

PATIENT
  Age: 24 Year
  Sex: Female
  Weight: 94.3482 kg

DRUGS (1)
  1. ORTHO-NOVUM 7/7/7-21 [Suspect]
     Indication: CONTRACEPTION
     Dosage: 1 Q DAY

REACTIONS (1)
  - METRORRHAGIA [None]
